FAERS Safety Report 5398812-3 (Version None)
Quarter: 2007Q3

REPORT INFORMATION
  Report Type: 
  Country: None (occurrence: None)
  Receive Date: 20070725
  Receipt Date: 20070725
  Transmission Date: 20080115
  Serious: No
  Sender: FDA-Public Use
  Company Number: None

PATIENT
  Age: 42 Year
  Sex: Male
  Weight: 97.5234 kg

DRUGS (2)
  1. LIPITOR [Suspect]
     Indication: SYSTEMIC LUPUS ERYTHEMATOSUS
     Dosage: 40MG 1QD PO
     Route: 048
     Dates: start: 20021031, end: 20030602
  2. LIPITOR [Suspect]
     Dosage: 20MG 1QD PO
     Route: 048
     Dates: start: 20030703, end: 20041122

REACTIONS (1)
  - THYMUS ENLARGEMENT [None]
